FAERS Safety Report 20023808 (Version 4)
Quarter: 2021Q4

REPORT INFORMATION
  Report Type: Spontaneous
  Country: CZ (occurrence: CZ)
  Receive Date: 20211102
  Receipt Date: 20211118
  Transmission Date: 20220303
  Serious: Yes (Other)
  Sender: FDA-Public Use
  Company Number: CZ-NOVARTISPH-NVSC2021CZ246475

PATIENT
  Age: 53 Year
  Sex: Male

DRUGS (5)
  1. RYDAPT [Suspect]
     Active Substance: MIDOSTAURIN
     Indication: Acute myeloid leukaemia
     Dosage: UNK
     Route: 065
  2. CYTARABINE [Suspect]
     Active Substance: CYTARABINE
     Indication: Acute myeloid leukaemia
     Dosage: 200 MG/M2, QD (CONT INFUSION, 24 H, DAY 1-7, AS INDUCTION CHEMOTHERAPY)
     Route: 041
  3. CYTARABINE [Suspect]
     Active Substance: CYTARABINE
     Dosage: 1 G/M2, Q12H (DAY 1-4, AS CONSOLIDATION 1 CHEMOTHERAPY)
     Route: 065
  4. GEMTUZUMAB OZOGAMICIN [Suspect]
     Active Substance: GEMTUZUMAB OZOGAMICIN
     Indication: Acute myeloid leukaemia
     Dosage: 3 MG/M2 (PER DOSE, 1 DOSE MAX. 5 MG ON DAY 1,4,7 AS INDUCTION CHEMOTHERAPY)
     Route: 065
  5. DAUNORUBICIN [Suspect]
     Active Substance: DAUNORUBICIN
     Indication: Acute myeloid leukaemia
     Dosage: 60 MG/M2, QD (DAY 1-3 AS INDUCTION CHEMOTHERAPY)
     Route: 065

REACTIONS (1)
  - Myelosuppression [Recovered/Resolved]
